FAERS Safety Report 9552235 (Version 1)
Quarter: 2013Q3

REPORT INFORMATION
  Report Type: Spontaneous
  Country: US (occurrence: None)
  Receive Date: 20130724
  Receipt Date: 20130724
  Transmission Date: 20140515
  Serious: Yes (Other)
  Sender: FDA-Public Use
  Company Number: PHEH2013US006406

PATIENT
  Age: 91 Year
  Sex: Female
  Weight: 43.5 kg

DRUGS (14)
  1. RECLAST (ZOLEDRONATE) SOLUTION FOR INJECTION [Suspect]
     Indication: OSTEOPOROSIS
     Dosage: 5 MG/100 ML, YEARLY, INTRAVENOUS
     Route: 042
     Dates: start: 20110128, end: 20120130
  2. CITALOPRAM HYDROBROMIDE (CITALOPRAM HHYDROBROMIDE) [Concomitant]
  3. TRAMADOL (TRAMADOL) [Concomitant]
  4. TRIAMCINOLONE ACETONIDE (TRIAMCINOLONE ACETONIDE) [Concomitant]
  5. AMLODIPINE (AMLODIPINE) [Concomitant]
  6. METOPROLOL (METOPROLOL) [Concomitant]
  7. MUCINEX [Concomitant]
  8. RANITIDINE (RANITIDINE) [Concomitant]
  9. ASPIRIN (ACETYLSALICYLIC ACID) [Concomitant]
  10. CALCIUM + VITAMIN D (CALCIUM, COLECALCIFEROL) [Concomitant]
  11. GLUCOSAMINE + CHONDROITIN (CHONDROITIN SULFATE, GLUCOSAMINE SULFATE) [Concomitant]
  12. METAMUCIL ORANGE (PLANTAGO OVATA) [Concomitant]
  13. CELEBREX (CELECOXIB) [Concomitant]
  14. MELOXICAM (MELOXICAM) [Concomitant]

REACTIONS (1)
  - Renal impairment [None]
